FAERS Safety Report 6490985-4 (Version None)
Quarter: 2009Q4

REPORT INFORMATION
  Report Type: 
  Country: None (occurrence: None)
  Receive Date: 20091211
  Receipt Date: 20091202
  Transmission Date: 20100525
  Serious: Yes (Hospitalization, Disabling)
  Sender: FDA-Public Use
  Company Number: US-ROCHE-666954

PATIENT
  Age: 67 Year
  Sex: Male
  Weight: 79.3 kg

DRUGS (25)
  1. BEVACIZUMAB [Suspect]
     Indication: GASTRIC CANCER
     Dosage: 1100 MG, Q3W
     Route: 042
     Dates: start: 20080917
  2. CAPECITABINE [Suspect]
     Indication: GASTRIC CANCER
     Dosage: 1000 MG, BID DAYS 1-14
     Route: 065
     Dates: start: 20080917
  3. COUMADIN [Concomitant]
  4. CARAFATE [Concomitant]
     Indication: DRUG USE FOR UNKNOWN INDICATION
     Dosage: 1 G, UNK
     Route: 048
  5. NORVASC [Concomitant]
     Indication: DRUG USE FOR UNKNOWN INDICATION
     Dosage: 10 MG, QD
     Route: 048
  6. KYTRIL [Concomitant]
     Indication: NAUSEA
     Dosage: 1 MG, QD
     Route: 048
     Dates: start: 20080924
  7. LOMOTIL [Concomitant]
     Indication: DRUG USE FOR UNKNOWN INDICATION
     Dosage: UNK
  8. FERROUS SULFATE TAB [Concomitant]
     Dosage: 27 MG, QDX2
     Route: 048
     Dates: start: 20080301
  9. PROTONIX [Concomitant]
     Dosage: 40 MG, QD
     Route: 048
     Dates: start: 20081008
  10. UROXATRAL [Concomitant]
     Dosage: 10 MG, QD
     Route: 048
     Dates: start: 20030101
  11. ISOSORBIDE DINITRATE [Concomitant]
     Dosage: 5 MG, UNK
     Route: 048
  12. PROCHLORPERAZINE [Concomitant]
     Indication: DRUG USE FOR UNKNOWN INDICATION
     Dosage: 10 MG, PRN
     Route: 048
  13. LYRICA [Concomitant]
     Indication: DRUG USE FOR UNKNOWN INDICATION
  14. LIPITOR [Concomitant]
     Indication: PROPHYLAXIS
  15. ASPIRIN [Concomitant]
     Indication: PROPHYLAXIS
     Dosage: 81 MG, QD
     Dates: start: 19960101
  16. VITAMIN E [Concomitant]
     Indication: VITAMIN SUPPLEMENTATION
     Dosage: 1000 IU, QD
     Dates: start: 20080301
  17. ASCORBIC ACID [Concomitant]
     Indication: VITAMIN SUPPLEMENTATION
     Dosage: 1000 MG, QD
     Dates: start: 20080301
  18. VITAMINE D [Concomitant]
     Indication: VITAMIN SUPPLEMENTATION
     Dosage: 1000 IU, QD
     Dates: start: 20080301
  19. VITAMIN B-12 [Concomitant]
     Indication: VITAMIN SUPPLEMENTATION
     Dosage: 250 ?G, QD
     Dates: start: 20080301
  20. ALKA-SELTZER [Concomitant]
     Dosage: 2 TABLET, PRN
     Dates: start: 20080201
  21. COMPAZINE [Concomitant]
     Indication: NAUSEA
     Dosage: 10 MG, PRN
     Dates: start: 20080917
  22. DIAZEPAM [Concomitant]
     Indication: ANXIETY
     Dosage: 5 MG, UNK
     Dates: start: 20081008
  23. CIPROFLOXACIN [Concomitant]
     Indication: GASTROENTERITIS
     Dosage: 500 MG, BID
     Dates: start: 20081007, end: 20081016
  24. CIPROFLOXACIN [Concomitant]
     Dosage: 500 MG, BID
     Dates: start: 20081007, end: 20081016
  25. PERCOCET [Concomitant]
     Indication: PAIN
     Dosage: UNK
     Dates: start: 20081119

REACTIONS (1)
  - DUODENAL ULCER [None]
